FAERS Safety Report 11827297 (Version 1)
Quarter: 2015Q4

REPORT INFORMATION
  Report Type: Spontaneous
  Country: JP (occurrence: JP)
  Receive Date: 20151211
  Receipt Date: 20151211
  Transmission Date: 20160305
  Serious: Yes (Hospitalization)
  Sender: FDA-Public Use
  Company Number: JP-ROCHE-1674963

PATIENT
  Age: 45 Year
  Sex: Female
  Weight: 39 kg

DRUGS (6)
  1. ZOMETA [Concomitant]
     Active Substance: ZOLEDRONIC ACID
     Indication: BREAST CANCER
     Dosage: DOSAGE IS UNCERTAIN.
     Route: 041
     Dates: start: 20100121
  2. VE-NICOTINATE [Concomitant]
     Indication: PROPHYLAXIS
     Route: 048
     Dates: start: 20121005, end: 20140807
  3. GOREISAN [Concomitant]
     Active Substance: HERBALS
     Indication: BRAIN OEDEMA
     Route: 048
     Dates: start: 20120127, end: 20140409
  4. DEPAKENE [Concomitant]
     Active Substance: VALPROIC ACID
     Indication: BRAIN TUMOUR OPERATION
     Route: 048
     Dates: start: 20081029
  5. KADCYLA [Suspect]
     Active Substance: ADO-TRASTUZUMAB EMTANSINE
     Indication: BREAST CANCER
     Route: 041
     Dates: start: 20140213
  6. FAMOTIDINE. [Concomitant]
     Active Substance: FAMOTIDINE
     Indication: PROPHYLAXIS
     Route: 048
     Dates: start: 20081029

REACTIONS (2)
  - Tumour haemorrhage [Recovered/Resolved]
  - Radiation necrosis [Recovered/Resolved]

NARRATIVE: CASE EVENT DATE: 20150626
